FAERS Safety Report 14529475 (Version 1)
Quarter: 2018Q1

REPORT INFORMATION
  Report Type: Spontaneous
  Country: US (occurrence: US)
  Receive Date: 20180213
  Receipt Date: 20180213
  Transmission Date: 20180509
  Serious: Yes (Life-Threatening, Hospitalization)
  Sender: FDA-Public Use
  Company Number: None

PATIENT
  Age: 65 Year
  Sex: Male

DRUGS (1)
  1. ACETAMINOPHEN AND CODEINE [Suspect]
     Active Substance: ACETAMINOPHEN\CODEINE PHOSPHATE
     Indication: PAIN
     Dosage: 300/30 MG PRN
     Dates: start: 20170425, end: 20170425

REACTIONS (6)
  - Dyspnoea [None]
  - Obstructive airways disorder [None]
  - Seizure [None]
  - Wheezing [None]
  - Tachycardia [None]
  - Tremor [None]

NARRATIVE: CASE EVENT DATE: 20170425
